FAERS Safety Report 15363332 (Version 1)
Quarter: 2018Q3

REPORT INFORMATION
  Report Type: Spontaneous
  Country: JP (occurrence: JP)
  Receive Date: 20180907
  Receipt Date: 20180907
  Transmission Date: 20181010
  Serious: Yes (Hospitalization)
  Sender: FDA-Public Use
  Company Number: JP-SA-2018SA243043

PATIENT
  Age: 67 Year
  Sex: Male

DRUGS (9)
  1. LEVOFOLINATE YAKULT [Suspect]
     Active Substance: LEVOLEUCOVORIN CALCIUM
     Indication: RECTAL CANCER
     Dosage: UNK UNK, QD
     Route: 041
  2. 5?FU [FLUOROURACIL] [Concomitant]
     Active Substance: FLUOROURACIL
     Dosage: UNK UNK, QCY
     Route: 040
  3. 5?FU [FLUOROURACIL] [Concomitant]
     Active Substance: FLUOROURACIL
     Dosage: UNK UNK, QCY
     Route: 042
  4. VECTIBIX [Concomitant]
     Active Substance: PANITUMUMAB
  5. ELPLAT [Suspect]
     Active Substance: OXALIPLATIN
     Indication: RECTAL CANCER
     Dosage: UNK, QD
     Route: 041
  6. 5?FU [FLUOROURACIL] [Concomitant]
     Active Substance: FLUOROURACIL
     Dosage: UNK UNK, QCY
     Route: 040
  7. LEVOFOLINATE YAKULT [Suspect]
     Active Substance: LEVOLEUCOVORIN CALCIUM
     Dosage: UNK UNK, QD
     Route: 041
  8. 5?FU [FLUOROURACIL] [Concomitant]
     Active Substance: FLUOROURACIL
     Dosage: UNK UNK, QCY
     Route: 042
  9. ELPLAT [Suspect]
     Active Substance: OXALIPLATIN
     Dosage: UNK, QD
     Route: 041

REACTIONS (4)
  - Aortic aneurysm [Recovering/Resolving]
  - Neutrophil count decreased [Unknown]
  - Anal abscess [Unknown]
  - Abdominal abscess [Unknown]
